FAERS Safety Report 14266118 (Version 1)
Quarter: 2017Q4

REPORT INFORMATION
  Report Type: Spontaneous
  Country: FR (occurrence: FR)
  Receive Date: 20171209
  Receipt Date: 20171209
  Transmission Date: 20180321
  Serious: Yes (Death, Life-Threatening, Other)
  Sender: FDA-Public Use
  Company Number: FR-MYLANLABS-2017M1076794

PATIENT
  Age: 25 Year
  Sex: Female
  Weight: 84 kg

DRUGS (16)
  1. SODIUM BICARBONATE. [Suspect]
     Active Substance: SODIUM BICARBONATE
     Indication: ADVERSE EVENT
     Dosage: 8.4% MOLAR VIALS
  2. METHYLPREDNISOLONE. [Concomitant]
     Active Substance: METHYLPREDNISOLONE
     Indication: PRODUCT USED FOR UNKNOWN INDICATION
  3. GLUCOSE [Suspect]
     Active Substance: DEXTROSE
     Indication: MEDICATION DILUTION
     Dosage: 500 ML, INTERVAL - 1 DAY
     Dates: start: 20170715
  4. AMIODARONE [Suspect]
     Active Substance: AMIODARONE
     Indication: ADVERSE EVENT
  5. RASBURICASE [Suspect]
     Active Substance: RASBURICASE
     Indication: PROPHYLAXIS
     Dosage: 1 INJECTION
  6. PHOXILIUM [Suspect]
     Active Substance: CALCIUM CL\MAGNESIUM CL\POTASSIUM CL\SODIUM BICAR\SODIUM CL\SODIUM PHOSPHATE,DIB
     Indication: HAEMOFILTRATION
     Route: 010
  7. INSULIN [Suspect]
     Active Substance: INSULIN NOS
     Indication: ADVERSE EVENT
     Dosage: 60 IU, INTERVAL- 1 DAY
     Dates: start: 20170715
  8. HEPARIN [Concomitant]
     Active Substance: HEPARIN SODIUM
     Indication: PRODUCT USED FOR UNKNOWN INDICATION
  9. DOBUTAMINE MYLAN [Suspect]
     Active Substance: DOBUTAMINE HYDROCHLORIDE
     Dosage: UP TO 1.5MG/KG
     Route: 065
  10. TAZOCILLINE [Concomitant]
     Active Substance: PIPERACILLIN SODIUM\TAZOBACTAM SODIUM
     Indication: PRODUCT USED FOR UNKNOWN INDICATION
  11. DOBUTAMINE MYLAN [Suspect]
     Active Substance: DOBUTAMINE HYDROCHLORIDE
     Indication: ADVERSE EVENT
     Dosage: 7.5 GAMMA/KG/MIN
  12. NOREPINEPHRINE. [Suspect]
     Active Substance: NOREPINEPHRINE
     Indication: ADVERSE EVENT
     Dosage: UP TO 14MG/H
  13. HEMOSOL B0 [Suspect]
     Active Substance: CALCIUM CL\DEXTROSE\LACTIC ACID\MAGNESIUM CL\POTASSIUM CL\SODIUM BICAR\SODIUM CL
     Indication: HAEMOFILTRATION
     Dosage: 72 LITERS/DAY IN TOTAL. INTERVAL - 1 HOUR
     Route: 042
     Dates: start: 20170715, end: 20170715
  14. NOREPINEPHRINE. [Suspect]
     Active Substance: NOREPINEPHRINE
     Dosage: UP TO 1.5MG/KG
     Route: 065
  15. POTASSIUM CHLORURE AGUETTANT [Suspect]
     Active Substance: POTASSIUM CHLORIDE
     Indication: TUMOUR LYSIS SYNDROME
     Dosage: ADDED IN PRE DILUTION BAG, FLOW WAS 1LITER PER HOUR, INTERVAL- 1 CYCLICAL
     Route: 042
     Dates: start: 20170715, end: 20170715
  16. ADRENALINE                         /00003901/ [Suspect]
     Active Substance: EPINEPHRINE
     Indication: ADVERSE EVENT

REACTIONS (14)
  - Cardiovascular insufficiency [Fatal]
  - Renal failure [Fatal]
  - Blood phosphorus increased [Fatal]
  - Malaise [Fatal]
  - Cerebral haematoma [Fatal]
  - Cardio-respiratory arrest [Fatal]
  - Respiratory failure [Fatal]
  - Hyperkalaemia [Fatal]
  - Cerebrovascular accident [Fatal]
  - General physical health deterioration [Fatal]
  - Incorrect dose administered [Fatal]
  - Tumour lysis syndrome [Fatal]
  - Nervous system disorder [Fatal]
  - Ventricular fibrillation [Fatal]

NARRATIVE: CASE EVENT DATE: 20170715
